FAERS Safety Report 20306755 (Version 3)
Quarter: 2022Q1

REPORT INFORMATION
  Report Type: Report from Study
  Country: PL (occurrence: PL)
  Receive Date: 20220106
  Receipt Date: 20220203
  Transmission Date: 20220423
  Serious: Yes (Hospitalization)
  Sender: FDA-Public Use
  Company Number: PL-JNJFOC-20211239840

PATIENT
  Age: 36 Year
  Sex: Male
  Weight: 61 kg

DRUGS (9)
  1. PLACEBO [Suspect]
     Active Substance: UNSPECIFIED INGREDIENT
     Indication: Colitis ulcerative
     Dosage: MOST RECENT DOSE ON 25-NOV-2021
     Route: 058
     Dates: start: 20210113
  2. MESALAMINE [Concomitant]
     Active Substance: MESALAMINE
  3. ZULBEX [Concomitant]
     Indication: Gastrooesophageal reflux disease
  4. ACETAMINOPHEN [Concomitant]
     Active Substance: ACETAMINOPHEN
     Indication: Abdominal pain
  5. ACETAMINOPHEN [Concomitant]
     Active Substance: ACETAMINOPHEN
     Indication: Nasopharyngitis
  6. ACETAMINOPHEN [Concomitant]
     Active Substance: ACETAMINOPHEN
  7. ALFACALCIDOL [Concomitant]
     Active Substance: ALFACALCIDOL
     Indication: Colitis ulcerative
  8. NIMESULIDE [Concomitant]
     Active Substance: NIMESULIDE
     Indication: Abdominal pain
  9. METRONIDAZOLE [Concomitant]
     Active Substance: METRONIDAZOLE
     Indication: Dysbiosis

REACTIONS (1)
  - Anal abscess [Recovering/Resolving]

NARRATIVE: CASE EVENT DATE: 20211222
